FAERS Safety Report 16098161 (Version 1)
Quarter: 2019Q1

REPORT INFORMATION
  Report Type: Spontaneous
  Country: US (occurrence: US)
  Receive Date: 20190320
  Receipt Date: 20190320
  Transmission Date: 20190418
  Serious: No
  Sender: FDA-Public Use
  Company Number: US-CELGENEUS-USA-20190304199

PATIENT
  Sex: Male

DRUGS (3)
  1. THALOMID [Suspect]
     Active Substance: THALIDOMIDE
     Indication: MYELOFIBROSIS
     Dosage: 50 MILLIGRAM
     Route: 048
     Dates: start: 201901
  2. THALOMID [Suspect]
     Active Substance: THALIDOMIDE
     Indication: MYELODYSPLASTIC SYNDROME
     Dosage: 50 MILLIGRAM
     Route: 048
     Dates: start: 201708
  3. THALOMID [Suspect]
     Active Substance: THALIDOMIDE
     Indication: OFF LABEL USE

REACTIONS (2)
  - Breast pain [Unknown]
  - Fatigue [Unknown]
